FAERS Safety Report 4327503-2 (Version None)
Quarter: 2004Q1

REPORT INFORMATION
  Report Type: 
  Country: None (occurrence: None)
  Receive Date: 20040325
  Receipt Date: 20040312
  Transmission Date: 20041129
  Serious: Yes (Hospitalization)
  Sender: FDA-Public Use
  Company Number: 02100-JPN-04-0033

PATIENT
  Age: 77 Year
  Sex: Female

DRUGS (2)
  1. CILOSTAZOL [Suspect]
     Dosage: 200 MG, ORAL
     Route: 048
     Dates: start: 20040201, end: 20040209
  2. TICLOPIDINE HYDROCHLORIDE [Concomitant]

REACTIONS (3)
  - ALANINE AMINOTRANSFERASE INCREASED [None]
  - ASPARTATE AMINOTRANSFERASE INCREASED [None]
  - HEPATIC FUNCTION ABNORMAL [None]
